FAERS Safety Report 16710638 (Version 1)
Quarter: 2019Q3

REPORT INFORMATION
  Report Type: Spontaneous
  Country: US (occurrence: US)
  Receive Date: 20190816
  Receipt Date: 20190816
  Transmission Date: 20191004
  Serious: Yes (Other)
  Sender: FDA-Public Use
  Company Number: US-MYLANLABS-2019M1074909

PATIENT
  Sex: Male

DRUGS (2)
  1. MELPHALAN. [Suspect]
     Active Substance: MELPHALAN
     Indication: RETINOBLASTOMA
     Dosage: 9 INTRAVITREAL INJECTIONS WERE ADMINISTERED PRIOR TO THE RETINAL DETACHMENT
     Route: 050
  2. TOPOTECAN [Suspect]
     Active Substance: TOPOTECAN HYDROCHLORIDE
     Indication: RETINOBLASTOMA
     Dosage: 9 INTRAVITREAL INJECTIONS WERE ADMINISTERED PRIOR TO THE RETINAL DETACHMENT
     Route: 050

REACTIONS (1)
  - Serous retinal detachment [Recovered/Resolved]
